FAERS Safety Report 15682176 (Version 1)
Quarter: 2018Q4

REPORT INFORMATION
  Report Type: Report from Study
  Country: CA (occurrence: CA)
  Receive Date: 20181203
  Receipt Date: 20181203
  Transmission Date: 20190205
  Serious: Yes (Other)
  Sender: FDA-Public Use
  Company Number: CA-JNJFOC-20181135046

PATIENT
  Age: 43 Year
  Sex: Female
  Weight: 59 kg

DRUGS (1)
  1. REMICADE [Suspect]
     Active Substance: INFLIXIMAB
     Indication: COLITIS ULCERATIVE
     Route: 042
     Dates: start: 20160331

REACTIONS (5)
  - Product use issue [Unknown]
  - Lupus-like syndrome [Unknown]
  - Off label use [Unknown]
  - Colitis ulcerative [Unknown]
  - Arthralgia [Unknown]

NARRATIVE: CASE EVENT DATE: 20160331
